FAERS Safety Report 6553843-2 (Version None)
Quarter: 2010Q1

REPORT INFORMATION
  Report Type: 
  Country: None (occurrence: None)
  Receive Date: 20100127
  Receipt Date: 20100122
  Transmission Date: 20100710
  Serious: Yes (Hospitalization, Other)
  Sender: FDA-Public Use
  Company Number: US-BAYER-201012255NA

PATIENT
  Sex: Female

DRUGS (1)
  1. YASMIN [Suspect]
     Indication: DRUG USE FOR UNKNOWN INDICATION
     Route: 048
     Dates: start: 20081101, end: 20081201

REACTIONS (5)
  - DEEP VEIN THROMBOSIS [None]
  - HYPOAESTHESIA [None]
  - PAIN [None]
  - PULMONARY EMBOLISM [None]
  - SWELLING [None]
